FAERS Safety Report 18433495 (Version 1)
Quarter: 2020Q4

REPORT INFORMATION
  Report Type: Spontaneous
  Country: ES (occurrence: ES)
  Receive Date: 20201027
  Receipt Date: 20201027
  Transmission Date: 20210114
  Serious: Yes (Hospitalization, Other)
  Sender: FDA-Public Use
  Company Number: ES-BAYER-2020-224478

PATIENT
  Age: 31 Year
  Sex: Female

DRUGS (2)
  1. ESSURE [Suspect]
     Active Substance: DEVICE
     Indication: FEMALE STERILISATION
     Dosage: UNK
     Dates: start: 20141202, end: 20180213
  2. MIRENA [Suspect]
     Active Substance: LEVONORGESTREL
     Indication: MENORRHAGIA
     Dosage: 20 ?G PER DAY CONTINUOUSLY
     Route: 015
     Dates: start: 20170316, end: 20171120

REACTIONS (24)
  - Pelvic pain [Unknown]
  - Arthralgia [Unknown]
  - Menstrual disorder [Unknown]
  - Breast discharge [Unknown]
  - Device breakage [Unknown]
  - Device dislocation [Unknown]
  - Pruritus genital [Unknown]
  - Menstruation irregular [Unknown]
  - Endometriosis [Unknown]
  - Abdominal pain lower [Unknown]
  - Menometrorrhagia [Unknown]
  - Menorrhagia [Unknown]
  - Swelling [Unknown]
  - Headache [Unknown]
  - Weight increased [Unknown]
  - Abdominal distension [Unknown]
  - Blindness [Unknown]
  - Tooth loss [Unknown]
  - Hypersensitivity [Unknown]
  - Adenomyosis [Unknown]
  - Allergy to metals [Unknown]
  - Mass [Unknown]
  - Fluid retention [Unknown]
  - Anaemia [Unknown]

NARRATIVE: CASE EVENT DATE: 2014
